FAERS Safety Report 23454881 (Version 1)
Quarter: 2024Q1

REPORT INFORMATION
  Report Type: Spontaneous
  Country: US (occurrence: US)
  Receive Date: 20240130
  Receipt Date: 20240130
  Transmission Date: 20240410
  Serious: Yes (Other)
  Sender: FDA-Public Use
  Company Number: US-STRIDES ARCOLAB LIMITED-2023SP007024

PATIENT
  Age: 21 Year
  Sex: Male

DRUGS (4)
  1. METHOTREXATE [Suspect]
     Active Substance: METHOTREXATE
     Indication: Precursor B-lymphoblastic lymphoma recurrent
     Dosage: UNK
     Route: 065
  2. METHOTREXATE [Suspect]
     Active Substance: METHOTREXATE
     Dosage: UNK, AS A PART OF WEEKLY TRIPLE INTRATHECAL THERAPY
     Route: 037
  3. CYTARABINE [Suspect]
     Active Substance: CYTARABINE
     Indication: Precursor B-lymphoblastic lymphoma recurrent
     Dosage: UNK, AS A PART OF WEEKLY TRIPLE INTRATHECAL THERAPY
     Route: 037
  4. HYDROCORTISONE SODIUM SUCCINATE [Suspect]
     Active Substance: HYDROCORTISONE SODIUM SUCCINATE
     Indication: Precursor B-lymphoblastic lymphoma recurrent
     Dosage: UNK, AS A PART OF WEEKLY TRIPLE INTRATHECAL THERAPY
     Route: 037

REACTIONS (1)
  - Drug ineffective [Unknown]
